FAERS Safety Report 24632601 (Version 1)
Quarter: 2024Q4

REPORT INFORMATION
  Report Type: Report from Study
  Country: US (occurrence: US)
  Receive Date: 20241118
  Receipt Date: 20241118
  Transmission Date: 20250115
  Serious: Yes (Hospitalization, Other)
  Sender: ABBVIE
  Company Number: US-ABBVIE-5965172

PATIENT
  Age: 63 Year
  Sex: Male
  Weight: 97.975 kg

DRUGS (3)
  1. RINVOQ [Suspect]
     Active Substance: UPADACITINIB
     Indication: Psoriatic arthropathy
     Route: 048
     Dates: start: 20231023, end: 2024
  2. AMLODIPINE [Concomitant]
     Active Substance: AMLODIPINE BESYLATE
     Indication: Blood pressure measurement
  3. LOSARTAN [Concomitant]
     Active Substance: LOSARTAN
     Indication: Blood pressure measurement

REACTIONS (6)
  - Nephrolithiasis [Recovering/Resolving]
  - Cough [Not Recovered/Not Resolved]
  - Urinary tract infection [Recovered/Resolved]
  - Peripheral swelling [Recovering/Resolving]
  - Multiple allergies [Not Recovered/Not Resolved]
  - Hypertension [Recovering/Resolving]

NARRATIVE: CASE EVENT DATE: 20240101
